FAERS Safety Report 9158111 (Version 1)
Quarter: 2013Q1

REPORT INFORMATION
  Report Type: Spontaneous
  Country: SE (occurrence: SE)
  Receive Date: 20130312
  Receipt Date: 20130312
  Transmission Date: 20140127
  Serious: Yes (Other)
  Sender: FDA-Public Use
  Company Number: SE-GLAXOSMITHKLINE-B0848004A

PATIENT
  Age: 70 Year
  Sex: Female

DRUGS (1)
  1. TROBALT [Suspect]
     Indication: EPILEPSY
     Dosage: 400MG PER DAY
     Route: 065
     Dates: start: 20121015

REACTIONS (5)
  - Convulsion [Unknown]
  - Drug ineffective [Unknown]
  - Fatigue [Unknown]
  - Sluggishness [Unknown]
  - Feelings of worthlessness [Unknown]
